FAERS Safety Report 9385177 (Version 1)
Quarter: 2013Q3

REPORT INFORMATION
  Report Type: Spontaneous
  Country: US (occurrence: US)
  Receive Date: 20130705
  Receipt Date: 20130705
  Transmission Date: 20140515
  Serious: No
  Sender: FDA-Public Use
  Company Number: US-ASTRAZENECA-2013SE48414

PATIENT
  Age: 84 Year
  Sex: Female
  Weight: 65.3 kg

DRUGS (6)
  1. ATENOLOL [Suspect]
     Indication: CARDIAC DISORDER
     Route: 065
  2. SYMBICORT [Suspect]
     Indication: LUNG DISORDER
     Dosage: 160/4.5 BID
     Route: 055
  3. ASPIRIN [Concomitant]
  4. LASIX [Concomitant]
     Indication: DIURETIC THERAPY
  5. SPIRIVA [Concomitant]
  6. ADVAIR [Concomitant]

REACTIONS (5)
  - Electrolyte imbalance [Unknown]
  - Dyspnoea [Not Recovered/Not Resolved]
  - Blood potassium decreased [Unknown]
  - Muscle spasms [Unknown]
  - Insomnia [Unknown]
